FAERS Safety Report 20556510 (Version 2)
Quarter: 2022Q2

REPORT INFORMATION
  Report Type: Report from Study
  Country: US (occurrence: US)
  Receive Date: 20220307
  Receipt Date: 20220414
  Transmission Date: 20220721
  Serious: Yes (Hospitalization, Other)
  Sender: FDA-Public Use
  Company Number: US-TEVA-2022-US-2012788

PATIENT
  Age: 19 Year
  Sex: Male
  Weight: 113.4 kg

DRUGS (9)
  1. METHOTREXATE [Suspect]
     Active Substance: METHOTREXATE
     Indication: Acute lymphocytic leukaemia
     Dosage: 464 MILLIGRAM DAILY;
     Route: 042
     Dates: start: 20211029, end: 20211029
  2. METHOTREXATE [Suspect]
     Active Substance: METHOTREXATE
     Dosage: 464 MILLIGRAM DAILY;
     Route: 042
     Dates: start: 20211119
  3. VINCRISTINE [Suspect]
     Active Substance: VINCRISTINE
     Indication: Acute lymphocytic leukaemia
     Dosage: 2 MILLIGRAM DAILY;
     Route: 042
     Dates: start: 20211029, end: 20211029
  4. VINCRISTINE [Suspect]
     Active Substance: VINCRISTINE
     Dosage: 2 MILLIGRAM DAILY;
     Route: 042
     Dates: start: 20211119
  5. RUXOLITINIB [Suspect]
     Active Substance: RUXOLITINIB
     Indication: Acute lymphocytic leukaemia
     Dosage: 50 MG/M2 DAILY;
     Route: 048
     Dates: start: 20211029, end: 20211104
  6. RUXOLITINIB [Suspect]
     Active Substance: RUXOLITINIB
     Dosage: 50 MG/M2 DAILY;
     Route: 048
     Dates: start: 20211201
  7. NALOXONE [Concomitant]
     Active Substance: NALOXONE
     Dates: start: 20211105
  8. ONDANSETRON [Concomitant]
     Active Substance: ONDANSETRON
     Dates: start: 20211105
  9. ATIVAN [Concomitant]
     Active Substance: LORAZEPAM
     Dates: start: 20211105

REACTIONS (5)
  - Stomatitis [Recovered/Resolved]
  - Febrile neutropenia [Recovered/Resolved]
  - Streptococcal bacteraemia [Recovered/Resolved]
  - Acute kidney injury [Recovered/Resolved]
  - Dehydration [Recovered/Resolved]
